FAERS Safety Report 14119730 (Version 7)
Quarter: 2018Q4

REPORT INFORMATION
  Report Type: Report from Study
  Country: DE (occurrence: DE)
  Receive Date: 20171024
  Receipt Date: 20181016
  Transmission Date: 20190204
  Serious: Yes (Hospitalization, Other)
  Sender: FDA-Public Use
  Company Number: PHHY2017DE127228

PATIENT
  Sex: Male
  Weight: 102 kg

DRUGS (15)
  1. JANUVIA [Concomitant]
     Active Substance: SITAGLIPTIN PHOSPHATE
     Indication: TYPE 2 DIABETES MELLITUS
     Dosage: 1 DF (50MG), QD
     Route: 048
     Dates: start: 20121205
  2. TORASEMIDE [Concomitant]
     Active Substance: TORSEMIDE
     Indication: CARDIAC FAILURE
     Dosage: 1 DF (10MG), BID
     Route: 048
     Dates: start: 20150302
  3. ALLOPURINOL. [Concomitant]
     Active Substance: ALLOPURINOL
     Indication: HYPERURICAEMIA
     Dosage: 0.5 DF (300 MG), QD
     Route: 048
     Dates: start: 20120509
  4. XARELTO [Concomitant]
     Active Substance: RIVAROXABAN
     Indication: CORONARY ARTERY DISEASE
     Dosage: 1 DF (20MG), QD
     Route: 048
     Dates: start: 20120130
  5. XIPAMIDE [Concomitant]
     Active Substance: XIPAMIDE
     Dosage: 1 DF (40 MG), QD
     Route: 048
     Dates: start: 20170824
  6. PANTOPRAZOLE [Concomitant]
     Active Substance: PANTOPRAZOLE
     Indication: GASTRITIS
     Dosage: 1 DF (40MG), QD
     Route: 048
     Dates: start: 20101213
  7. EPLERENONE. [Concomitant]
     Active Substance: EPLERENONE
     Indication: CARDIAC FAILURE
     Dosage: 1 DF (25MG), QD
     Route: 048
     Dates: start: 20151125
  8. CARVEDILOL. [Concomitant]
     Active Substance: CARVEDILOL
     Indication: CARDIAC FAILURE
     Dosage: 1 DF (25MG), BID
     Route: 048
     Dates: start: 20081110
  9. ENTRESTO [Suspect]
     Active Substance: SACUBITRIL\VALSARTAN
     Indication: CARDIAC FAILURE
     Dosage: 1 DF (24MG OF SACUBITRIL AND 26MG OF VALSARTAN), BID
     Route: 048
     Dates: start: 20170301, end: 20170323
  10. ENTRESTO [Suspect]
     Active Substance: SACUBITRIL\VALSARTAN
     Dosage: 1 DF (24MG OF SACUBITRIL AND 26MG OF VALSARTAN), BID
     Route: 048
     Dates: start: 20170613
  11. DIGITOXIN [Concomitant]
     Active Substance: DIGITOXIN
     Indication: CARDIAC FAILURE
     Dosage: 1 DF (0.07MG), QD
     Route: 048
     Dates: start: 20100309, end: 20170923
  12. PREGABALIN. [Concomitant]
     Active Substance: PREGABALIN
     Indication: DIABETIC NEUROPATHY
     Dosage: 2 DF (25MG), TID
     Route: 048
     Dates: start: 20170923
  13. METFORMIN [Concomitant]
     Active Substance: METFORMIN HYDROCHLORIDE
     Indication: TYPE 2 DIABETES MELLITUS
     Dosage: 1 DF (500MG), BID
     Route: 048
     Dates: start: 20170923
  14. ENTRESTO [Suspect]
     Active Substance: SACUBITRIL\VALSARTAN
     Dosage: 1 DF (49MG OF SACUBITRIL AND 51MG OF VALSARTAN), BID
     Route: 048
     Dates: start: 20170324, end: 20170612
  15. XIPAMIDE [Concomitant]
     Active Substance: XIPAMIDE
     Indication: CARDIAC FAILURE
     Dosage: 0.5 DF (40 MG), EVERY OTHER DAY
     Route: 048
     Dates: start: 20120227, end: 20170823

REACTIONS (7)
  - Arrhythmia [Unknown]
  - Syncope [Recovered/Resolved]
  - Diabetes mellitus inadequate control [Recovering/Resolving]
  - Gait disturbance [Recovering/Resolving]
  - Ventricular tachycardia [Recovered/Resolved]
  - Abdominal discomfort [Recovering/Resolving]
  - Constipation [Recovering/Resolving]

NARRATIVE: CASE EVENT DATE: 20170808
